FAERS Safety Report 18528851 (Version 1)
Quarter: 2020Q4

REPORT INFORMATION
  Report Type: Spontaneous
  Country: SK (occurrence: SK)
  Receive Date: 20201120
  Receipt Date: 20201120
  Transmission Date: 20210114
  Serious: Yes (Death, Hospitalization, Other)
  Sender: FDA-Public Use
  Company Number: SK-PFIZER INC-2020450508

PATIENT
  Age: 44 Year
  Sex: Male
  Weight: 145 kg

DRUGS (11)
  1. ADVAGRAF [Suspect]
     Active Substance: TACROLIMUS
     Dosage: 1.5 MG, DAILY
  2. ADVAGRAF [Suspect]
     Active Substance: TACROLIMUS
     Dosage: 14 MG
  3. VANCOMYCIN [Suspect]
     Active Substance: VANCOMYCIN
     Dosage: 1.0 MG, WEEKLY
     Route: 042
  4. METHYLPREDNISOLONE. [Suspect]
     Active Substance: METHYLPREDNISOLONE
     Dosage: 6 MG
  5. CYCLOSPORINE. [Suspect]
     Active Substance: CYCLOSPORINE
     Indication: IMMUNOSUPPRESSION
     Dosage: 3 MG/KG, DAILY
  6. METRONIDAZOLUM [Suspect]
     Active Substance: METRONIDAZOLE
     Dosage: 500 MG, EVERY 8 HOURS
     Route: 042
  7. BITAMMON [AMPICILLIN SODIUM;SULBACTAM SODIUM] [Suspect]
     Active Substance: AMPICILLIN SODIUM\SULBACTAM SODIUM
     Dosage: 8 MG, EVERY 8 HOURS
     Route: 042
  8. METHYLPREDNISOLONE. [Suspect]
     Active Substance: METHYLPREDNISOLONE
     Indication: IMMUNOSUPPRESSION
     Dosage: 24 MG, DAILY
  9. MYFORTIC [Suspect]
     Active Substance: MYCOPHENOLATE SODIUM
     Dosage: 360 MG, 1-0-1
  10. MEDROL [Suspect]
     Active Substance: METHYLPREDNISOLONE
     Indication: IMMUNOSUPPRESSION
     Dosage: 8 MG
  11. MYFORTIC [Suspect]
     Active Substance: MYCOPHENOLATE SODIUM
     Dosage: 380 MG, 2-0-1

REACTIONS (4)
  - Drug ineffective [Fatal]
  - Blood pressure increased [Fatal]
  - Sepsis [Unknown]
  - Skin disorder [Unknown]
